FAERS Safety Report 6478351-9 (Version None)
Quarter: 2009Q4

REPORT INFORMATION
  Report Type: 
  Country: None (occurrence: None)
  Receive Date: 20091207
  Receipt Date: 20091123
  Transmission Date: 20100525
  Serious: Yes (Hospitalization)
  Sender: FDA-Public Use
  Company Number: US-SOLVAY-00209007266

PATIENT
  Age: 26622 Day
  Sex: Male

DRUGS (5)
  1. HYDROCORTISONE [Concomitant]
     Indication: HYPOPITUITARISM
     Dosage: DAILY DOSE: 20 MILLIGRAM(S)
     Route: 048
     Dates: start: 20080801
  2. ANDROGEL [Suspect]
     Indication: HYPOPITUITARISM
     Dosage: DAILY DOSE: 10 GRAM(S)
     Route: 062
     Dates: start: 20070821
  3. SYNTHROID [Concomitant]
     Indication: HYPOPITUITARISM
     Dosage: DAILY DOSE: 88 MICROGRAM(S)
     Route: 048
     Dates: start: 20080201
  4. HUMATROPE [Suspect]
     Indication: HYPOPITUITARISM
     Dosage: DAILY DOSE: .3 MILLIGRAM(S)
     Route: 058
     Dates: start: 20070821
  5. DDAVP [Concomitant]
     Indication: DIABETES INSIPIDUS
     Dosage: DAILY DOSE:  1 SPRAY, AS USED: 1 SPRAY, FREQUENCY: ONCE A DAY
     Route: 045
     Dates: start: 20060101

REACTIONS (1)
  - UROSEPSIS [None]
